FAERS Safety Report 6298223-2 (Version None)
Quarter: 2009Q3

REPORT INFORMATION
  Report Type: 
  Country: None (occurrence: None)
  Receive Date: 20090805
  Receipt Date: 20090728
  Transmission Date: 20100115
  Serious: Yes (Hospitalization)
  Sender: FDA-Public Use
  Company Number: ZA-AVENTIS-200913880GDDC

PATIENT
  Age: 0 Day
  Sex: Male
  Weight: 2.4 kg

DRUGS (2)
  1. LANTUS [Suspect]
     Indication: DIABETIC RELATIVE
     Dosage: DOSE: 24-28
     Route: 015
     Dates: start: 20081101, end: 20090101
  2. APIDRA [Suspect]
     Indication: DIABETIC RELATIVE
     Dosage: DOSE: 30-35
     Route: 015
     Dates: start: 20081101, end: 20090101

REACTIONS (2)
  - DRUG EXPOSURE DURING PREGNANCY [None]
  - PREMATURE BABY [None]
